FAERS Safety Report 17674600 (Version 2)
Quarter: 2020Q2

REPORT INFORMATION
  Report Type: Spontaneous
  Country: FR (occurrence: FR)
  Receive Date: 20200416
  Receipt Date: 20200508
  Transmission Date: 20200714
  Serious: Yes (Hospitalization, Other)
  Sender: FDA-Public Use
  Company Number: FR-TEVA-2020-FR-1221217

PATIENT
  Age: 95 Year
  Sex: Female

DRUGS (4)
  1. PANTOPRAZOLE TEVA SANTE 20 MG [Suspect]
     Active Substance: PANTOPRAZOLE SODIUM
     Dates: start: 20200403
  2. KARDEGIC 160 [Concomitant]
     Dosage: 1 DOSAGE FORMS DAILY;
  3. PAROXETINE TEVA 20 MG [Suspect]
     Active Substance: PAROXETINE
     Dates: start: 20200404
  4. BROMAZEPAM MYLAN [Concomitant]
     Active Substance: BROMAZEPAM
     Dates: start: 202002

REACTIONS (12)
  - Respiratory distress [Unknown]
  - Oedema peripheral [Unknown]
  - Abdominal distension [Recovered/Resolved]
  - Pruritus [Unknown]
  - Diarrhoea [Unknown]
  - Allergic reaction to excipient [Unknown]
  - Product substitution issue [Unknown]
  - Rash [Unknown]
  - Hypothermia [Unknown]
  - Hypotension [Recovered/Resolved]
  - Loss of consciousness [Recovered/Resolved]
  - Eye swelling [Recovered/Resolved]

NARRATIVE: CASE EVENT DATE: 20200404
